FAERS Safety Report 17568229 (Version 1)
Quarter: 2020Q1

REPORT INFORMATION
  Report Type: Spontaneous
  Country: US (occurrence: US)
  Receive Date: 20200320
  Receipt Date: 20200320
  Transmission Date: 20200409
  Serious: Yes (Hospitalization)
  Sender: FDA-Public Use
  Company Number: US-SA-2020SA071018

PATIENT
  Age: 63 Year
  Sex: Female
  Weight: 97.5 kg

DRUGS (4)
  1. LOVENOX [Suspect]
     Active Substance: ENOXAPARIN SODIUM
     Indication: THROMBOSIS
     Dosage: 100 MG, BID
     Route: 030
     Dates: start: 20160913
  2. SUNITINIB MALATE. [Suspect]
     Active Substance: SUNITINIB MALATE
     Indication: RENAL CELL CARCINOMA
     Dosage: 50 MG, QD 4 WEEKS ON/2 WEEKS OFF
     Route: 048
     Dates: start: 20160916, end: 20160927
  3. COMPAZINE [PROCHLORPERAZINE EDISYLATE] [Concomitant]
     Active Substance: PROCHLORPERAZINE EDISYLATE
     Indication: NAUSEA
     Dosage: UNK
     Route: 065
     Dates: start: 20160922
  4. COMPAZINE [PROCHLORPERAZINE EDISYLATE] [Concomitant]
     Active Substance: PROCHLORPERAZINE EDISYLATE
     Indication: VOMITING

REACTIONS (4)
  - Vomiting [Recovered/Resolved]
  - Abdominal pain [Recovered/Resolved]
  - Haematuria [Recovering/Resolving]
  - Nausea [Recovered/Resolved]

NARRATIVE: CASE EVENT DATE: 20160927
